FAERS Safety Report 9643577 (Version 1)
Quarter: 2013Q4

REPORT INFORMATION
  Report Type: Spontaneous
  Country: US (occurrence: US)
  Receive Date: 20131024
  Receipt Date: 20131024
  Transmission Date: 20140711
  Serious: Yes (Death)
  Sender: FDA-Public Use
  Company Number: US-GLAXOSMITHKLINE-A1046209A

PATIENT
  Age: 56 Year
  Sex: Male

DRUGS (1)
  1. VOTRIENT [Suspect]
     Indication: HEPATIC CANCER
     Dosage: 800MG PER DAY
     Route: 048
     Dates: start: 20130506, end: 20130615

REACTIONS (1)
  - Disease progression [Fatal]
